FAERS Safety Report 19005484 (Version 2)
Quarter: 2021Q1

REPORT INFORMATION
  Report Type: Spontaneous
  Country: SI (occurrence: SI)
  Receive Date: 20210313
  Receipt Date: 20210323
  Transmission Date: 20210420
  Serious: Yes (Other)
  Sender: FDA-Public Use
  Company Number: NVSC2021SI055641

PATIENT
  Age: 49 Year
  Sex: Female

DRUGS (3)
  1. MYDRIACYL [Suspect]
     Active Substance: TROPICAMIDE
     Indication: OPEN ANGLE GLAUCOMA
  2. MYDRIACYL [Suspect]
     Active Substance: TROPICAMIDE
     Indication: MYDRIASIS
  3. MYDRIACYL [Suspect]
     Active Substance: TROPICAMIDE
     Indication: ASTIGMATISM
     Dosage: UNK
     Route: 065
     Dates: start: 2017

REACTIONS (3)
  - Syncope [Recovered/Resolved]
  - Fall [Recovered/Resolved]
  - Loss of consciousness [Recovered/Resolved]

NARRATIVE: CASE EVENT DATE: 2017
